FAERS Safety Report 22003029 (Version 1)
Quarter: 2023Q1

REPORT INFORMATION
  Report Type: Spontaneous
  Country: CN (occurrence: CN)
  Receive Date: 20230217
  Receipt Date: 20230217
  Transmission Date: 20230418
  Serious: Yes (Death, Hospitalization, Other)
  Sender: FDA-Public Use
  Company Number: CN-009507513-2302CHN004197

PATIENT
  Age: 65 Year
  Sex: Male
  Weight: 50 kg

DRUGS (1)
  1. CILASTATIN SODIUM\IMIPENEM [Suspect]
     Active Substance: CILASTATIN SODIUM\IMIPENEM
     Indication: Pneumonia
     Dosage: 1 GRAM, EVERY 6 HOURS (Q6H)
     Route: 041
     Dates: start: 20230126, end: 20230130

REACTIONS (7)
  - Death [Fatal]
  - Blood bilirubin unconjugated increased [Not Recovered/Not Resolved]
  - Malignant neoplasm progression [Unknown]
  - Intestinal obstruction [Unknown]
  - Pneumonia [Unknown]
  - Bilirubin conjugated increased [Not Recovered/Not Resolved]
  - Blood bilirubin increased [Not Recovered/Not Resolved]

NARRATIVE: CASE EVENT DATE: 20230127
